FAERS Safety Report 5108004-0 (Version None)
Quarter: 2006Q3

REPORT INFORMATION
  Report Type: 
  Country: None (occurrence: None)
  Receive Date: 20060914
  Receipt Date: 20060908
  Transmission Date: 20061208
  Serious: Yes (Other)
  Sender: FDA-Public Use
  Company Number: 163-20785-06090052

PATIENT
  Age: 49 Year
  Sex: Female
  Weight: 64.4108 kg

DRUGS (5)
  1. THALOMID [Suspect]
     Indication: MALIGNANT MELANOMA
     Dosage: 7 IN 1 D, ORAL
     Route: 048
     Dates: start: 20060608
  2. TEMODAR [Suspect]
     Indication: MALIGNANT MELANOMA
  3. CCNU (LOMUSTINE) [Suspect]
     Indication: MALIGNANT MELANOMA
  4. DURAGESIC-100 [Concomitant]
  5. DILAUDID [Concomitant]

REACTIONS (7)
  - ARTHRALGIA [None]
  - BLOOD HUMAN CHORIONIC GONADOTROPIN INCREASED [None]
  - FEELING ABNORMAL [None]
  - HEADACHE [None]
  - LUNG DISORDER [None]
  - OEDEMA [None]
  - PAIN IN EXTREMITY [None]
